FAERS Safety Report 5060418-3 (Version None)
Quarter: 2006Q2

REPORT INFORMATION
  Report Type: 
  Country: None (occurrence: None)
  Receive Date: 20060630
  Receipt Date: 20060308
  Transmission Date: 20061013
  Serious: Yes (Hospitalization)
  Sender: FDA-Public Use
  Company Number: 2006RL000079

PATIENT
  Sex: Female

DRUGS (2)
  1. ANTARA (MICRONIZED) [Suspect]
     Indication: HYPERTRIGLYCERIDAEMIA
     Dosage: 130 MG;QD;PO
     Route: 048
  2. AVANDIA [Concomitant]

REACTIONS (1)
  - WHITE BLOOD CELL COUNT DECREASED [None]
